FAERS Safety Report 7928947-X (Version None)
Quarter: 2011Q4

REPORT INFORMATION
  Report Type: 
  Country: None (occurrence: None)
  Receive Date: 20111118
  Receipt Date: 20111115
  Transmission Date: 20120403
  Serious: Yes (Other)
  Sender: FDA-Public Use
  Company Number: GB-MERCK-1111GBR00068

PATIENT
  Age: 47 Year
  Sex: Male
  Weight: 86 kg

DRUGS (3)
  1. ZOCOR [Suspect]
     Route: 048
     Dates: start: 20110905
  2. MIRTAZAPINE [Concomitant]
     Route: 065
     Dates: start: 20110905
  3. ALBUTEROL [Concomitant]
     Route: 065
     Dates: start: 20110905

REACTIONS (1)
  - LIP SWELLING [None]
